FAERS Safety Report 8607790-2 (Version None)
Quarter: 2012Q3

REPORT INFORMATION
  Report Type: 
  Country: None (occurrence: None)
  Receive Date: 20120821
  Receipt Date: 20120816
  Transmission Date: 20120928
  Serious: Yes (Hospitalization, Other)
  Sender: FDA-Public Use
  Company Number: PHHY2011CA108317

PATIENT
  Sex: Male

DRUGS (1)
  1. SANDOSTATIN LAR [Suspect]
     Indication: SHORT-BOWEL SYNDROME
     Dosage: 20 MG, ONCE A MONTH
     Route: 030
     Dates: start: 20110913

REACTIONS (3)
  - CATHETER SITE INFECTION [None]
  - BACTERIAL TEST POSITIVE [None]
  - KIDNEY INFECTION [None]
